FAERS Safety Report 24296411 (Version 1)
Quarter: 2024Q3

REPORT INFORMATION
  Report Type: Spontaneous
  Country: CN (occurrence: CN)
  Receive Date: 20240909
  Receipt Date: 20240909
  Transmission Date: 20241017
  Serious: Yes (Other)
  Sender: Teyro Labs
  Company Number: CN-TEYRO-2024-TY-000573

PATIENT
  Age: 55 Year
  Weight: 56 kg

DRUGS (3)
  1. CARBOPLATIN [Suspect]
     Active Substance: CARBOPLATIN
     Indication: Oesophageal squamous cell carcinoma stage IV
     Dosage: AREA UNDER THE CURVE, 4-6
     Route: 065
  2. TORIPALIMAB [Suspect]
     Active Substance: TORIPALIMAB
     Indication: Oesophageal squamous cell carcinoma stage IV
     Dosage: 240 MG VIA INTRAVENOUSLY EVERY 3 WEEKS FOR 12 MONTHS
     Route: 042
  3. PACLITAXEL [Suspect]
     Active Substance: PACLITAXEL
     Indication: Oesophageal squamous cell carcinoma stage IV
     Dosage: 135-175 MG/M2
     Route: 065

REACTIONS (11)
  - Hypothyroidism [Unknown]
  - Lymphopenia [Unknown]
  - Leukopenia [Unknown]
  - Neutropenia [Unknown]
  - Therapy partial responder [Unknown]
  - Hypoproteinaemia [Unknown]
  - Anaemia [Unknown]
  - Aspartate aminotransferase increased [Unknown]
  - Nausea [Unknown]
  - Vomiting [Unknown]
  - Off label use [Unknown]
